FAERS Safety Report 11891315 (Version 2)
Quarter: 2016Q1

REPORT INFORMATION
  Report Type: Spontaneous
  Country: US (occurrence: US)
  Receive Date: 20160106
  Receipt Date: 20160212
  Transmission Date: 20160526
  Serious: No
  Sender: FDA-Public Use
  Company Number: US-BAYER-2016-001339

PATIENT
  Sex: Female

DRUGS (1)
  1. MIRALAX [Suspect]
     Active Substance: POLYETHYLENE GLYCOL 3350
     Indication: CONSTIPATION
     Dosage: 1 DF, PRN
     Route: 048
     Dates: start: 2015

REACTIONS (4)
  - Product taste abnormal [None]
  - Abdominal discomfort [Recovered/Resolved]
  - Product solubility abnormal [None]
  - Product taste abnormal [None]

NARRATIVE: CASE EVENT DATE: 2015
